FAERS Safety Report 14679016 (Version 1)
Quarter: 2018Q1

REPORT INFORMATION
  Report Type: Spontaneous
  Country: US (occurrence: US)
  Receive Date: 20180326
  Receipt Date: 20180326
  Transmission Date: 20180509
  Serious: No
  Sender: FDA-Public Use
  Company Number: US-BAYER-2018-049822

PATIENT
  Age: 94 Year
  Sex: Male
  Weight: 72.97 kg

DRUGS (2)
  1. LOPRESSOR [Concomitant]
     Active Substance: METOPROLOL TARTRATE
  2. MIRALAX [Suspect]
     Active Substance: POLYETHYLENE GLYCOL 3350
     Indication: GASTROINTESTINAL DISORDER
     Dosage: 1 FULL PACKET ONCE A DAY DOSE
     Route: 048
     Dates: start: 2006

REACTIONS (5)
  - Drug ineffective [None]
  - Product physical issue [None]
  - Poor quality drug administered [None]
  - Product solubility abnormal [None]
  - Product use issue [Not Recovered/Not Resolved]

NARRATIVE: CASE EVENT DATE: 2006
